FAERS Safety Report 8459327-9 (Version None)
Quarter: 2012Q2

REPORT INFORMATION
  Report Type: 
  Country: None (occurrence: None)
  Receive Date: 20120622
  Receipt Date: 20120620
  Transmission Date: 20120825
  Serious: No
  Sender: FDA-Public Use
  Company Number: US-BAYER-2012-061806

PATIENT
  Sex: Female

DRUGS (1)
  1. GADAVIST [Suspect]
     Dosage: 7.5 MG, ONCE
     Dates: start: 20120501

REACTIONS (2)
  - OROPHARYNGEAL DISCOMFORT [None]
  - URTICARIA [None]
